FAERS Safety Report 7101646-2 (Version None)
Quarter: 2010Q4

REPORT INFORMATION
  Report Type: 
  Country: None (occurrence: None)
  Receive Date: 20101115
  Receipt Date: 20101103
  Transmission Date: 20110411
  Serious: Yes (Hospitalization)
  Sender: FDA-Public Use
  Company Number: ES-ELI_LILLY_AND_COMPANY-ES201010002585

PATIENT
  Sex: Male
  Weight: 70 kg

DRUGS (9)
  1. FORTEO [Suspect]
     Indication: OSTEOPOROSIS
     Dosage: 20 UG, DAILY (1/D)
     Route: 058
     Dates: start: 20100810, end: 20101020
  2. ANASMA [Concomitant]
     Indication: RENAL FAILURE
     Dosage: 1-2 PUFFS, EVERY 12 HOURS
     Route: 055
  3. ATROVENT [Concomitant]
     Indication: RESPIRATORY FAILURE
     Dosage: 1 PUFF, EVERY 12 HOURS
     Route: 055
  4. BARNIDIPINE HYDROCHLORIDE [Concomitant]
     Indication: HYPERTENSION
     Dosage: 1 TABLET, EVERY 24 HOURS
     Route: 048
  5. SEGURIL [Concomitant]
     Indication: DIURETIC THERAPY
     Dosage: 2 TABLETS, EVERY 24 HOURS
     Route: 048
  6. ASPIRIN [Concomitant]
     Indication: CARDIAC DISORDER
     Dosage: 100 MG, DAILY (1/D)
     Route: 048
  7. OMEPRAZOLE [Concomitant]
     Indication: PROPHYLAXIS
     Dosage: 1 TABLET, EVERY 24 HOURS
  8. CARVEDILOL [Concomitant]
     Indication: VARICES OESOPHAGEAL
     Dosage: 1 TABLET, EVERY 24 HOURS
     Route: 048
  9. PARACETAMOL [Concomitant]
     Indication: PAIN
     Dosage: 1 TABLET, EVERY 8 HOURS
     Route: 048

REACTIONS (5)
  - DEMENTIA ALZHEIMER'S TYPE [None]
  - DIET REFUSAL [None]
  - HAEMATURIA [None]
  - PAIN IN EXTREMITY [None]
  - URINARY TRACT INFECTION [None]
